FAERS Safety Report 10183987 (Version 1)
Quarter: 2014Q2

REPORT INFORMATION
  Report Type: Spontaneous
  Country: US (occurrence: US)
  Receive Date: 20140520
  Receipt Date: 20140520
  Transmission Date: 20141212
  Serious: Yes (Other)
  Sender: FDA-Public Use
  Company Number: US-MYLANLABS-2013S1026357

PATIENT
  Sex: Female

DRUGS (3)
  1. ESTRADIOL [Suspect]
     Indication: HORMONE THERAPY
     Route: 048
     Dates: start: 1994, end: 2002
  2. PREMARIN [Suspect]
     Indication: HORMONE THERAPY
     Route: 048
     Dates: start: 1994, end: 2002
  3. MEDROXYPROGESTERONE ACETATE [Suspect]
     Indication: HORMONE THERAPY
     Route: 048
     Dates: start: 1994, end: 2002

REACTIONS (1)
  - Breast cancer [Not Recovered/Not Resolved]
